FAERS Safety Report 9799634 (Version 1)
Quarter: 2014Q1

REPORT INFORMATION
  Report Type: Spontaneous
  Country: US (occurrence: US)
  Receive Date: 20140106
  Receipt Date: 20140106
  Transmission Date: 20141002
  Serious: Yes (Other)
  Sender: FDA-Public Use
  Company Number: US-GE HEALTHCARE MEDICAL DIAGNOSTICS-OSCN-PR-1312S-0137

PATIENT
  Age: 56 Year
  Sex: Female

DRUGS (7)
  1. OMNISCAN [Suspect]
     Indication: PRODUCT USED FOR UNKNOWN INDICATION
     Route: 042
     Dates: start: 20000328, end: 20000328
  2. OMNISCAN [Suspect]
     Route: 042
     Dates: start: 20011026, end: 20011026
  3. OMNISCAN [Suspect]
     Route: 042
     Dates: start: 20030617, end: 20030617
  4. OMNISCAN [Suspect]
     Route: 042
     Dates: start: 20040325, end: 20040325
  5. OMNISCAN [Suspect]
     Route: 042
     Dates: start: 20050602, end: 20050602
  6. OMNISCAN [Suspect]
     Route: 042
     Dates: start: 20060627, end: 20060627
  7. GADOLINIUM (UNSPECIFIED) [Suspect]
     Indication: PRODUCT USED FOR UNKNOWN INDICATION
     Dates: start: 20011026, end: 20011026

REACTIONS (1)
  - Nephrogenic systemic fibrosis [Not Recovered/Not Resolved]
